FAERS Safety Report 23932453 (Version 1)
Quarter: 2024Q2

REPORT INFORMATION
  Report Type: Spontaneous
  Country: US (occurrence: US)
  Receive Date: 20240603
  Receipt Date: 20240603
  Transmission Date: 20240716
  Serious: Yes (Other)
  Sender: FDA-Public Use
  Company Number: US-DRL-USA-LIT/USA/24/0007911

PATIENT
  Age: 73 Year
  Sex: Male

DRUGS (2)
  1. PREGABALIN [Suspect]
     Active Substance: PREGABALIN
     Indication: Neuropathy peripheral
  2. NEURONTIN [Concomitant]
     Active Substance: GABAPENTIN
     Indication: Neuropathy peripheral

REACTIONS (1)
  - Drug ineffective [Unknown]
